FAERS Safety Report 16318666 (Version 1)
Quarter: 2019Q2

REPORT INFORMATION
  Report Type: Spontaneous
  Country: IT (occurrence: IT)
  Receive Date: 20190516
  Receipt Date: 20190516
  Transmission Date: 20190711
  Serious: Yes (Disabling)
  Sender: FDA-Public Use
  Company Number: IT-AMGEN-ITASP2019074595

PATIENT
  Age: 72 Year
  Sex: Female

DRUGS (12)
  1. SINTROM [Concomitant]
     Active Substance: ACENOCOUMAROL
  2. DELTACORTENE [Concomitant]
     Active Substance: PREDNISONE
     Dosage: 2.5 MILLIGRAM, QD
  3. RIOPAN [PIROXICAM] [Concomitant]
     Active Substance: PIROXICAM
  4. AZATHIOPRINE. [Concomitant]
     Active Substance: AZATHIOPRINE
  5. DIBASE [Concomitant]
     Active Substance: CHOLECALCIFEROL
     Dosage: 100.000 U.I./ML
  6. CRESTOR [Concomitant]
     Active Substance: ROSUVASTATIN CALCIUM
     Dosage: 5 MILLIGRAM
  7. OROTRE [Concomitant]
  8. LIMPIDEX [Concomitant]
     Active Substance: LANSOPRAZOLE
  9. KESTINE [Concomitant]
     Active Substance: EBASTINE
     Dosage: 10 MILLIGRAM
  10. ROCALTROL [Concomitant]
     Active Substance: CALCITRIOL
  11. SINGULAIR [Concomitant]
     Active Substance: MONTELUKAST SODIUM
     Dosage: 4 MILLIGRAM
  12. PROLIA [Suspect]
     Active Substance: DENOSUMAB
     Indication: OSTEOPOROSIS
     Dosage: UNK
     Route: 058

REACTIONS (1)
  - Vertebral lesion [Recovered/Resolved with Sequelae]

NARRATIVE: CASE EVENT DATE: 201809
